FAERS Safety Report 5832629-8 (Version None)
Quarter: 2008Q3

REPORT INFORMATION
  Report Type: 
  Country: None (occurrence: None)
  Receive Date: 20080804
  Receipt Date: 20080725
  Transmission Date: 20090109
  Serious: Yes (Other)
  Sender: FDA-Public Use
  Company Number: PHRM2008FR00965

PATIENT
  Sex: Female

DRUGS (5)
  1. SYNTOCINON [Suspect]
     Indication: UTERINE ATONY
     Dosage: 5 IU, ONCE/SINGLE
     Dates: start: 20080226, end: 20080226
  2. SYNTOCINON [Suspect]
     Dosage: 15 IU, ONCE/SINGLE
     Dates: start: 20080226
  3. XYLOCAINE [Concomitant]
     Indication: EPIDURAL ANAESTHESIA
     Route: 008
     Dates: start: 20080226
  4. NAROPEINE [Concomitant]
     Indication: EPIDURAL ANAESTHESIA
     Route: 008
     Dates: start: 20080226
  5. SUFENTA [Concomitant]
     Indication: EPIDURAL ANAESTHESIA
     Route: 008
     Dates: start: 20080226

REACTIONS (6)
  - CAESAREAN SECTION [None]
  - DRUG INEFFECTIVE [None]
  - FOETAL HEART RATE ABNORMAL [None]
  - HIGH FOETAL HEAD [None]
  - POSTPARTUM HAEMORRHAGE [None]
  - UTERINE ATONY [None]
